FAERS Safety Report 4705934-6 (Version None)
Quarter: 2005Q2

REPORT INFORMATION
  Report Type: 
  Country: None (occurrence: None)
  Receive Date: 20050628
  Receipt Date: 20040309
  Transmission Date: 20051028
  Serious: Yes (Hospitalization)
  Sender: FDA-Public Use
  Company Number: VISP-PR-0403S-0104

PATIENT
  Age: 66 Year
  Sex: Male
  Weight: 82.6 kg

DRUGS (10)
  1. VISIPAQUE [Suspect]
     Indication: RENAL ARTERY STENOSIS
     Dosage: 130 ML, SINGLE DOSE, I.A.
     Route: 013
     Dates: start: 20031103, end: 20031103
  2. ANGIOMAX [Concomitant]
  3. ACETYLCYSTEINE [Concomitant]
  4. NORVASC [Concomitant]
  5. MAGNESIUM OXIDE [Concomitant]
  6. METOPROLOL TARTRATE (LOPRESSOR) [Concomitant]
  7. NICOTINE (NICODERM) [Concomitant]
  8. TERAZOSIN HYDROCHLORIDE [Concomitant]
  9. THERAGENERIX [Concomitant]
  10. ACETYLSALICYLIC ACID SRT [Concomitant]

REACTIONS (1)
  - BLOOD CREATININE INCREASED [None]
